FAERS Safety Report 6998571-4 (Version None)
Quarter: 2010Q3

REPORT INFORMATION
  Report Type: 
  Country: None (occurrence: None)
  Receive Date: 20100920
  Receipt Date: 20091104
  Transmission Date: 20110219
  Serious: No
  Sender: FDA-Public Use
  Company Number: US-ASTRAZENECA-2009SE24438

PATIENT
  Age: 46 Year
  Sex: Female
  Weight: 81.6 kg

DRUGS (7)
  1. SEROQUEL [Suspect]
     Indication: MIGRAINE
     Route: 048
     Dates: start: 19970101
  2. ZANAFLEX [Concomitant]
  3. EFFEXOR [Concomitant]
  4. LOPRESSOR [Concomitant]
  5. KLONOPIN [Concomitant]
  6. KEPPRA [Concomitant]
  7. TREXIMET [Concomitant]

REACTIONS (2)
  - ASTHMA [None]
  - MULTIPLE SCLEROSIS [None]
